FAERS Safety Report 8060576-2 (Version None)
Quarter: 2012Q1

REPORT INFORMATION
  Report Type: 
  Country: None (occurrence: None)
  Receive Date: 20120120
  Receipt Date: 20120117
  Transmission Date: 20120608
  Serious: Yes (Other)
  Sender: FDA-Public Use
  Company Number: PHFR2011GB04630

PATIENT
  Sex: Female
  Weight: 70 kg

DRUGS (5)
  1. TEGRETOL [Suspect]
     Indication: TRIGEMINAL NEURALGIA
     Dosage: 200 MG, QD
     Route: 065
     Dates: start: 20110715, end: 20110803
  2. ACETAMINOPHEN AND CODEINE PHOSPHATE [Concomitant]
     Route: 065
  3. TEGRETOL [Suspect]
     Dosage: 100 MG, QD
     Route: 065
  4. VITAMIN B-12 [Concomitant]
     Route: 065
  5. ACETAMINOPHEN [Concomitant]
     Dosage: 1 G, DAILY
     Route: 048

REACTIONS (3)
  - RASH GENERALISED [None]
  - EYE SWELLING [None]
  - ANGIODERMATITIS [None]
